FAERS Safety Report 10866897 (Version 2)
Quarter: 2015Q1

REPORT INFORMATION
  Report Type: Spontaneous
  Country: CA (occurrence: CA)
  Receive Date: 20150225
  Receipt Date: 20150327
  Transmission Date: 20150721
  Serious: Yes (Hospitalization)
  Sender: FDA-Public Use
  Company Number: CA-ROCHE-1542967

PATIENT
  Sex: Female

DRUGS (20)
  1. PANTOPRAZOLE [Concomitant]
     Active Substance: PANTOPRAZOLE SODIUM
  2. ASPIRIN. [Concomitant]
     Active Substance: ASPIRIN
  3. BISOPROLOL [Concomitant]
     Active Substance: BISOPROLOL
  4. CITALOPRAM [Concomitant]
     Active Substance: CITALOPRAM HYDROBROMIDE
  5. FUROSEMIDE. [Concomitant]
     Active Substance: FUROSEMIDE
  6. EURO-K [Concomitant]
  7. CLOPIDOGREL [Concomitant]
     Active Substance: CLOPIDOGREL BISULFATE
  8. CARBOCAL D [Concomitant]
     Active Substance: CALCIUM\VITAMIN D
  9. SULFATE FERREUX [Concomitant]
  10. SYNTHROID [Concomitant]
     Active Substance: LEVOTHYROXINE SODIUM
  11. SECARIS [Concomitant]
     Active Substance: PROPYLENE GLYCOL
     Route: 045
  12. MAVIK [Concomitant]
     Active Substance: TRANDOLAPRIL
     Route: 065
  13. BENADRYL ALLERGY (CANADA) [Concomitant]
     Route: 065
  14. LUCENTIS [Suspect]
     Active Substance: RANIBIZUMAB
     Indication: AGE-RELATED MACULAR DEGENERATION
     Route: 050
     Dates: start: 20130419, end: 20150218
  15. AMLODIPINE [Concomitant]
     Active Substance: AMLODIPINE BESYLATE
  16. BETADERM (CANADA) [Concomitant]
     Route: 065
  17. ACETAMINOPHEN. [Concomitant]
     Active Substance: ACETAMINOPHEN
     Route: 065
  18. DOCUSATE SODIUM. [Concomitant]
     Active Substance: DOCUSATE SODIUM
  19. DOXAZOSIN [Concomitant]
     Active Substance: DOXAZOSIN\DOXAZOSIN MESYLATE
  20. NITRO-DUR [Concomitant]
     Active Substance: NITROGLYCERIN

REACTIONS (1)
  - Cerebrovascular accident [Unknown]
